FAERS Safety Report 20998953 (Version 2)
Quarter: 2022Q3

REPORT INFORMATION
  Report Type: Spontaneous
  Country: NL (occurrence: NL)
  Receive Date: 20220623
  Receipt Date: 20220708
  Transmission Date: 20221027
  Serious: Yes (Life-Threatening, Hospitalization)
  Sender: FDA-Public Use
  Company Number: NL-TEVA-2022-NL-2047578

PATIENT
  Age: 31 Year
  Sex: Female

DRUGS (14)
  1. VENLAFAXINE [Suspect]
     Active Substance: VENLAFAXINE HYDROCHLORIDE
     Indication: Depression
     Dosage: SHE INGESTED 120 EXTENDED RELEASE CAPSULES OF VENLAFAXINE 150MG (ONCE DAILY FREQUENCY). THIS MADE TH
     Route: 048
  2. VENLAFAXINE [Suspect]
     Active Substance: VENLAFAXINE HYDROCHLORIDE
     Indication: Intentional product misuse
  3. VENLAFAXINE [Suspect]
     Active Substance: VENLAFAXINE HYDROCHLORIDE
     Indication: Intentional overdose
  4. VENLAFAXINE [Suspect]
     Active Substance: VENLAFAXINE HYDROCHLORIDE
     Indication: Suicide attempt
  5. ACTIVATED CHARCOAL [Suspect]
     Active Substance: ACTIVATED CHARCOAL
     Indication: Toxicity to various agents
     Route: 048
  6. SODIUM SULFATE [Suspect]
     Active Substance: SODIUM SULFATE
     Indication: Toxicity to various agents
     Route: 065
  7. SODIUM SULFATE [Suspect]
     Active Substance: SODIUM SULFATE
     Indication: Laxative supportive care
  8. NEOSTIGMINE [Suspect]
     Active Substance: NEOSTIGMINE
     Indication: Toxicity to various agents
     Route: 065
  9. RIVAROXABAN [Concomitant]
     Active Substance: RIVAROXABAN
     Indication: Anticoagulant therapy
     Dosage: 20 MILLIGRAM DAILY;
     Route: 065
  10. MIDAZOLAM [Concomitant]
     Active Substance: MIDAZOLAM
     Indication: Sedative therapy
     Route: 030
  11. MIDAZOLAM [Concomitant]
     Active Substance: MIDAZOLAM
     Indication: Endotracheal intubation
  12. SUFENTANIL [Concomitant]
     Active Substance: SUFENTANIL
     Indication: Endotracheal intubation
     Route: 065
  13. NOREPINEPHRINE [Concomitant]
     Active Substance: NOREPINEPHRINE
     Indication: Vasopressive therapy
     Route: 065
  14. VALPROIC ACID [Concomitant]
     Active Substance: VALPROIC ACID
     Indication: Seizure
     Route: 065

REACTIONS (11)
  - Suicide attempt [Recovering/Resolving]
  - Intentional overdose [Recovering/Resolving]
  - Intentional product misuse [Recovering/Resolving]
  - Toxicity to various agents [Recovering/Resolving]
  - Serotonin syndrome [Recovered/Resolved]
  - Lactic acidosis [Recovering/Resolving]
  - Metabolic acidosis [Recovering/Resolving]
  - Hepatic failure [Recovering/Resolving]
  - Multiple organ dysfunction syndrome [Recovering/Resolving]
  - Shock [Recovered/Resolved]
  - Drug ineffective [Unknown]
